FAERS Safety Report 24260067 (Version 1)
Quarter: 2024Q3

REPORT INFORMATION
  Report Type: Spontaneous
  Country: CN (occurrence: CN)
  Receive Date: 20240828
  Receipt Date: 20240828
  Transmission Date: 20241016
  Serious: Yes (Hospitalization, Other)
  Sender: TAKEDA
  Company Number: CN-HUTCHMED LIMITED-HMP2024CN01923

PATIENT
  Age: 71 Year
  Sex: Female
  Weight: 51 kg

DRUGS (1)
  1. FRUQUINTINIB [Suspect]
     Active Substance: FRUQUINTINIB
     Indication: Rectal cancer
     Dosage: 5 MILLIGRAM, QD
     Route: 048
     Dates: start: 20240805, end: 20240817

REACTIONS (6)
  - Platelet count decreased [Recovering/Resolving]
  - Blood potassium decreased [Recovering/Resolving]
  - Metastases to lung [Unknown]
  - Hiatus hernia [Unknown]
  - Hypoproteinaemia [Unknown]
  - Hypertension [Unknown]

NARRATIVE: CASE EVENT DATE: 20240818
